FAERS Safety Report 9645976 (Version 1)
Quarter: 2013Q4

REPORT INFORMATION
  Report Type: Spontaneous
  Country: CA (occurrence: CA)
  Receive Date: 20131025
  Receipt Date: 20131025
  Transmission Date: 20140711
  Serious: Yes (Other)
  Sender: FDA-Public Use
  Company Number: CA-GLAXOSMITHKLINE-A1046384A

PATIENT
  Sex: Female

DRUGS (1)
  1. VOTRIENT [Suspect]
     Indication: RENAL CELL CARCINOMA
     Dosage: 400MG PER DAY
     Route: 065

REACTIONS (9)
  - Incision site haemorrhage [Recovering/Resolving]
  - Hepatotoxicity [Recovered/Resolved]
  - Oral discomfort [Recovered/Resolved]
  - Decreased appetite [Recovered/Resolved]
  - Incisional drainage [Recovering/Resolving]
  - Erythema [Recovered/Resolved]
  - Limb discomfort [Recovered/Resolved]
  - Hyperaesthesia [Recovered/Resolved]
  - Discomfort [Unknown]
